FAERS Safety Report 5433101-X (Version None)
Quarter: 2007Q3

REPORT INFORMATION
  Report Type: 
  Country: None (occurrence: None)
  Receive Date: 20070828
  Receipt Date: 20070828
  Transmission Date: 20080115
  Serious: Yes (Other)
  Sender: FDA-Public Use
  Company Number: None

PATIENT
  Age: 67 Year
  Sex: Female
  Weight: 70.3075 kg

DRUGS (1)
  1. ALBUTEROL [Suspect]
     Indication: DYSPNOEA
     Dosage: 2 PUFFS DAILY INHAL
     Route: 055
     Dates: start: 20070826, end: 20070827

REACTIONS (2)
  - DRUG INEFFECTIVE [None]
  - DYSPNOEA [None]
